FAERS Safety Report 6274204-X (Version None)
Quarter: 2009Q3

REPORT INFORMATION
  Report Type: 
  Country: None (occurrence: None)
  Receive Date: 20090720
  Receipt Date: 20090709
  Transmission Date: 20100115
  Serious: Yes (Other)
  Sender: FDA-Public Use
  Company Number: CA-JNJFOC-20090703626

PATIENT
  Weight: 70.5 kg

DRUGS (1)
  1. REMICADE [Suspect]
     Indication: CROHN'S DISEASE
     Dosage: 36 TOTAL DOSES
     Route: 042

REACTIONS (4)
  - DIARRHOEA [None]
  - NAUSEA [None]
  - RIB FRACTURE [None]
  - VOMITING [None]
